FAERS Safety Report 5215009-8 (Version None)
Quarter: 2007Q1

REPORT INFORMATION
  Report Type: 
  Country: None (occurrence: None)
  Receive Date: 20070122
  Receipt Date: 20070110
  Transmission Date: 20070707
  Serious: Yes (Death, Other)
  Sender: FDA-Public Use
  Company Number: US-PFIZER INC-2005172597

PATIENT
  Sex: Female
  Weight: 86.2 kg

DRUGS (14)
  1. GABAPENTIN [Suspect]
     Indication: NEUROPATHY PERIPHERAL
  2. GABAPENTIN [Suspect]
     Indication: RESTLESS LEGS SYNDROME
  3. PERCOCET [Suspect]
     Dosage: FREQ:3 TABLETS EVERY OTHER DAY
  4. AMBIEN [Suspect]
  5. CELEBREX [Concomitant]
  6. SERZONE [Concomitant]
  7. PLAQUENIL [Concomitant]
  8. BOTOX [Concomitant]
     Route: 065
     Dates: start: 19980825, end: 20030317
  9. POTASSIUM ACETATE [Concomitant]
  10. ATACAND [Concomitant]
  11. ZANAFLEX [Concomitant]
  12. HYDROCHLOROTHIAZIDE [Concomitant]
  13. SENNA [Concomitant]
  14. HALOPERIDOL [Concomitant]

REACTIONS (9)
  - COMPLETED SUICIDE [None]
  - DEPRESSION [None]
  - DRUG INEFFECTIVE [None]
  - DRUG TOXICITY [None]
  - HEPATIC CONGESTION [None]
  - PANCREATIC DISORDER [None]
  - PERICARDIAL FIBROSIS [None]
  - PULMONARY CONGESTION [None]
  - RENAL DISORDER [None]
